FAERS Safety Report 16779570 (Version 2)
Quarter: 2020Q1

REPORT INFORMATION
  Report Type: Spontaneous
  Country: GB (occurrence: GB)
  Receive Date: 20190906
  Receipt Date: 20200219
  Transmission Date: 20200409
  Serious: Yes (Death, Life-Threatening, Hospitalization, Other)
  Sender: FDA-Public Use
  Company Number: GB-TEVA-2019-GB-1102601

PATIENT
  Age: 81 Year
  Sex: Male

DRUGS (2)
  1. CEFALEXIN [Suspect]
     Active Substance: CEPHALEXIN
     Indication: URINARY TRACT INFECTION
     Dosage: 1000 MILLIGRAM 1 DAYS
     Route: 048
     Dates: start: 20190618, end: 20190624
  2. CEFALEXIN [Suspect]
     Active Substance: CEPHALEXIN
     Dosage: 1000 MG
     Route: 048
     Dates: start: 20190531, end: 20190606

REACTIONS (2)
  - Clostridium difficile colitis [Fatal]
  - Urosepsis [Fatal]

NARRATIVE: CASE EVENT DATE: 20190623
